FAERS Safety Report 22146363 (Version 1)
Quarter: 2023Q1

REPORT INFORMATION
  Report Type: Spontaneous
  Country: NL (occurrence: NL)
  Receive Date: 20230328
  Receipt Date: 20230328
  Transmission Date: 20230417
  Serious: Yes (Life-Threatening, Other)
  Sender: FDA-Public Use
  Company Number: None

PATIENT

DRUGS (1)
  1. LAMOTRIGINE [Suspect]
     Active Substance: LAMOTRIGINE
     Indication: Myotonia congenita
     Dosage: 25 MG, QD, 1X PER DAY 1 PIECE
     Route: 065
     Dates: start: 20220203, end: 20220310

REACTIONS (3)
  - Myalgia [Unknown]
  - Oral candidiasis [Unknown]
  - Lymphadenopathy [Unknown]
